FAERS Safety Report 18056681 (Version 3)
Quarter: 2020Q4

REPORT INFORMATION
  Report Type: Report from Study
  Country: JP (occurrence: JP)
  Receive Date: 20200722
  Receipt Date: 20201013
  Transmission Date: 20210113
  Serious: Yes (Hospitalization, Other)
  Sender: FDA-Public Use
  Company Number: JP-ASTELLAS-2017JP020224AA

PATIENT
  Age: 72 Year
  Sex: Female
  Weight: 47 kg

DRUGS (92)
  1. ASP2215 [Suspect]
     Active Substance: GILTERITINIB
     Route: 048
     Dates: start: 20171106, end: 20171206
  2. ASP2215 [Suspect]
     Active Substance: GILTERITINIB
     Route: 048
     Dates: start: 20171207, end: 2018
  3. HISHIPHAGEN C [CYSTEINE HYDROCHLORIDE;GLYCINE;GLYCYRRHIZIC ACID] [Concomitant]
     Indication: HEPATIC FUNCTION ABNORMAL
     Route: 042
     Dates: start: 20170920
  4. ASPARA-CA [Concomitant]
     Active Substance: CALCIUM ASPARTATE
     Indication: HYPOCALCAEMIA
     Route: 048
     Dates: start: 20171006
  5. MEROPENEM. [Concomitant]
     Active Substance: MEROPENEM
     Dosage: UNK, UNKNOWN FREQ.
     Route: 042
     Dates: start: 20181005, end: 20181016
  6. BESOFTEN [Concomitant]
     Active Substance: PENTOSAN POLYSULFATE SODIUM
     Indication: DRY SKIN PROPHYLAXIS
  7. FLUCONAZOLE. [Concomitant]
     Active Substance: FLUCONAZOLE
     Indication: INFECTION PROPHYLAXIS
     Route: 048
     Dates: start: 20171226
  8. AMBISOME [Concomitant]
     Active Substance: AMPHOTERICIN B
     Dosage: UNKNOWN DOSE
     Route: 041
     Dates: start: 20181012, end: 20181026
  9. ASP2215 [Suspect]
     Active Substance: GILTERITINIB
     Route: 048
     Dates: start: 20181228, end: 20190124
  10. AS3156378 [Suspect]
     Active Substance: AZACITIDINE
     Indication: ACUTE MYELOID LEUKAEMIA
     Route: 058
     Dates: start: 20170925, end: 201710
  11. MEROPENEM. [Concomitant]
     Active Substance: MEROPENEM
     Indication: FEBRILE NEUTROPENIA
     Route: 042
     Dates: start: 20171010, end: 20171113
  12. HEPARINOID [Concomitant]
     Active Substance: CHONDROITIN SULFATE (BOVINE)
     Indication: PANNICULITIS
     Dosage: ADEQUATE DOSE, ONCE DAILY
     Route: 061
     Dates: start: 20171031
  13. BESOFTEN [Concomitant]
     Active Substance: PENTOSAN POLYSULFATE SODIUM
     Indication: PANNICULITIS
     Dosage: ADEQUATE DOSE, ONCE DAILY
     Route: 061
     Dates: start: 20171031
  14. ENALAPRIL MALEATE. [Concomitant]
     Active Substance: ENALAPRIL MALEATE
     Dosage: UNK UNK, UNKNOWN FREQ.
     Route: 048
     Dates: start: 20181213
  15. ASPARA POTASSIUM [Concomitant]
     Active Substance: POTASSIUM ASPARTATE
     Indication: HYPOKALAEMIA
     Route: 048
     Dates: start: 20171225
  16. FEBURIC [Concomitant]
     Active Substance: FEBUXOSTAT
     Indication: HYPERURICAEMIA
     Route: 048
     Dates: start: 20180423, end: 20180430
  17. ZOSYN [Concomitant]
     Active Substance: PIPERACILLIN SODIUM\TAZOBACTAM SODIUM
     Indication: PNEUMONIA
     Route: 042
     Dates: start: 20180813, end: 20180817
  18. ZOSYN [Concomitant]
     Active Substance: PIPERACILLIN SODIUM\TAZOBACTAM SODIUM
     Dosage: UNK UNK, UNKNOWN FREQ.
     Route: 042
     Dates: start: 20181211, end: 20181212
  19. AMBISOME [Concomitant]
     Active Substance: AMPHOTERICIN B
     Indication: PNEUMONIA FUNGAL
     Route: 041
     Dates: start: 20180530, end: 20180627
  20. SOLDEM 1 [Concomitant]
     Active Substance: DEXTROSE\SODIUM CHLORIDE\SODIUM LACTATE
     Indication: PROPHYLAXIS
     Route: 042
     Dates: start: 20180915
  21. ASP2215 [Suspect]
     Active Substance: GILTERITINIB
     Indication: ACUTE MYELOID LEUKAEMIA
     Route: 048
     Dates: start: 20170925, end: 20171021
  22. ASP2215 [Suspect]
     Active Substance: GILTERITINIB
     Route: 048
     Dates: start: 20181017, end: 20181213
  23. AS3156378 [Suspect]
     Active Substance: AZACITIDINE
     Route: 058
     Dates: start: 20171106, end: 2018
  24. AS3156378 [Suspect]
     Active Substance: AZACITIDINE
     Route: 058
     Dates: start: 20180614, end: 2018
  25. MULCHINA [Concomitant]
     Indication: DRY EYE
  26. LANSOPRAZOLE. [Concomitant]
     Active Substance: LANSOPRAZOLE
     Indication: PROPHYLAXIS
     Route: 048
     Dates: start: 20170914
  27. SENNOSIDE A+B [Concomitant]
     Active Substance: SENNOSIDES A AND B
     Route: 048
  28. MEROPENEM. [Concomitant]
     Active Substance: MEROPENEM
     Indication: FEBRILE NEUTROPENIA
     Dosage: 0.5 G, TWICE DAILY
     Route: 042
     Dates: start: 20180817, end: 20180904
  29. CRAVIT [Concomitant]
     Active Substance: LEVOFLOXACIN
     Indication: FEBRILE NEUTROPENIA
     Route: 042
     Dates: start: 20171014, end: 20171107
  30. ENALAPRIL MALEATE. [Concomitant]
     Active Substance: ENALAPRIL MALEATE
     Indication: HYPERTENSION
     Route: 048
     Dates: start: 20171101
  31. ENALAPRIL MALEATE. [Concomitant]
     Active Substance: ENALAPRIL MALEATE
     Indication: CARDIAC DYSFUNCTION
     Route: 048
     Dates: start: 20171101
  32. CALONAL [Concomitant]
     Active Substance: ACETAMINOPHEN
     Dosage: UNK UNK, UNKNOWN FREQ.
     Route: 048
     Dates: start: 20181211
  33. ASP2215 [Suspect]
     Active Substance: GILTERITINIB
     Route: 048
     Dates: start: 20180614, end: 2018
  34. ASP2215 [Suspect]
     Active Substance: GILTERITINIB
     Route: 048
     Dates: start: 20180717, end: 2018
  35. AS3156378 [Suspect]
     Active Substance: AZACITIDINE
     Route: 058
     Dates: start: 20180717, end: 2018
  36. AS3156378 [Suspect]
     Active Substance: AZACITIDINE
     Route: 058
     Dates: start: 20180913, end: 2018
  37. AS3156378 [Suspect]
     Active Substance: AZACITIDINE
     Route: 048
     Dates: start: 20181228
  38. HYALONSAN [Concomitant]
     Active Substance: HYALURONATE SODIUM
     Indication: CATARACT OPERATION
     Dosage: 1-2 DROPS, AS NEEDED
     Route: 047
     Dates: start: 2011
  39. BESOFTEN [Concomitant]
     Active Substance: PENTOSAN POLYSULFATE SODIUM
     Indication: DRY SKIN PROPHYLAXIS
  40. CANCIDAS [Concomitant]
     Active Substance: CASPOFUNGIN ACETATE
     Indication: FEBRILE NEUTROPENIA
  41. MEROPENEM. [Concomitant]
     Active Substance: MEROPENEM
     Dosage: UNK UNK, UNKNOWN FREQ.
     Route: 042
     Dates: start: 20181212
  42. HYDROCORTONE [HYDROCORTISONE SODIUM PHOSPHATE] [Concomitant]
     Active Substance: HYDROCORTISONE SODIUM PHOSPHATE
     Route: 065
     Dates: start: 20180904
  43. HEPARINOID [Concomitant]
     Active Substance: CHONDROITIN SULFATE (BOVINE)
     Indication: DRY SKIN PROPHYLAXIS
  44. PREDONINE [Concomitant]
     Active Substance: PREDNISOLONE
     Indication: PANNICULITIS
     Route: 048
     Dates: start: 20171104
  45. OLOPATADINE HYDROCHLORIDE. [Concomitant]
     Active Substance: OLOPATADINE HYDROCHLORIDE
     Indication: PANNICULITIS
     Route: 048
     Dates: start: 20171201
  46. FLUCONAZOLE. [Concomitant]
     Active Substance: FLUCONAZOLE
     Dosage: UNKNOWN DOSE
     Route: 048
     Dates: start: 20180629, end: 20180817
  47. LEVOFLOXACIN HEMIHYDRATE [Concomitant]
     Active Substance: LEVOFLOXACIN
     Indication: PROPHYLAXIS
     Route: 048
     Dates: start: 20181101, end: 20181108
  48. PREDNISOLONE. [Concomitant]
     Active Substance: PREDNISOLONE
     Indication: PANNICULITIS
     Route: 048
     Dates: start: 20180405
  49. FINIBAX [Concomitant]
     Active Substance: DORIPENEM MONOHYDRATE
     Indication: FEBRILE NEUTROPENIA
     Dosage: UNKNOWN DOSE
     Route: 042
     Dates: start: 20180904, end: 20180913
  50. FINIBAX [Concomitant]
     Active Substance: DORIPENEM MONOHYDRATE
     Dosage: UNKNOWN DOSE
     Route: 041
     Dates: start: 20181016, end: 20181031
  51. ITRIZOLE [Concomitant]
     Active Substance: ITRACONAZOLE
     Indication: PROPHYLAXIS
     Route: 048
     Dates: start: 20181029, end: 20181212
  52. ITRIZOLE [Concomitant]
     Active Substance: ITRACONAZOLE
     Indication: PROPHYLAXIS
  53. AS3156378 [Suspect]
     Active Substance: AZACITIDINE
     Route: 058
     Dates: start: 20181017
  54. SENNOSIDE A+B [Concomitant]
     Active Substance: SENNOSIDES A AND B
     Indication: CONSTIPATION
     Route: 048
     Dates: start: 20170914
  55. GENTAMICIN SULFATE. [Concomitant]
     Active Substance: GENTAMICIN SULFATE
     Indication: VASCULAR DEVICE INFECTION
     Dosage: ADEQUATE DOSE, TWICE DAILY
     Route: 061
     Dates: start: 20170917, end: 20171110
  56. LASIX [Concomitant]
     Active Substance: FUROSEMIDE
     Indication: PROPHYLAXIS
     Route: 042
     Dates: start: 20170918, end: 20171031
  57. ACETAMINOPHEN. [Concomitant]
     Active Substance: ACETAMINOPHEN
     Indication: VASCULAR DEVICE INFECTION
     Dosage: 800 MG, AT THE ONSET OF PYREXIA
     Route: 042
     Dates: start: 20171011, end: 20171027
  58. PREDONINE [PREDNISOLONE SODIUM SUCCINATE] [Concomitant]
     Active Substance: PREDNISOLONE SODIUM SUCCINATE
     Indication: ERYTHEMA NODOSUM
     Route: 042
     Dates: start: 20171021, end: 20171104
  59. CALONAL [Concomitant]
     Active Substance: ACETAMINOPHEN
     Route: 048
     Dates: start: 20180917
  60. ASP2215 [Suspect]
     Active Substance: GILTERITINIB
     Route: 048
     Dates: start: 20180221, end: 2018
  61. ASP2215 [Suspect]
     Active Substance: GILTERITINIB
     Route: 048
     Dates: start: 20180816, end: 2018
  62. MAGNESIUM OXIDE. [Concomitant]
     Active Substance: MAGNESIUM OXIDE
     Indication: CONSTIPATION
     Route: 048
     Dates: start: 20170914
  63. HYDROXYCARBAMIDE [Concomitant]
     Active Substance: HYDROXYUREA
     Indication: ACUTE MYELOID LEUKAEMIA
     Dosage: UNKNOWN DOSE
     Route: 048
     Dates: start: 20170915
  64. CANCIDAS [Concomitant]
     Active Substance: CASPOFUNGIN ACETATE
     Indication: INFECTION PROPHYLAXIS
     Route: 042
     Dates: start: 20171008, end: 20171022
  65. HYDROCORTONE [HYDROCORTISONE SODIUM PHOSPHATE] [Concomitant]
     Active Substance: HYDROCORTISONE SODIUM PHOSPHATE
     Indication: FEBRILE NEUTROPENIA
     Dosage: 100 MG, AT THE ONSET OF PYREXIA
     Route: 042
     Dates: start: 20171014, end: 20171025
  66. TEICOPLANIN [Concomitant]
     Active Substance: TEICOPLANIN
     Dosage: UNK UNK, UNKNOWN FREQ.
     Route: 042
     Dates: start: 20181212
  67. FLUCONAZOLE. [Concomitant]
     Active Substance: FLUCONAZOLE
     Route: 048
     Dates: start: 20180503, end: 20180608
  68. GLYCYRON [DL-METHIONINE;GLYCINE;GLYCYRRHIZIC ACID, AMMONIUM SALT] [Concomitant]
     Indication: PROPHYLAXIS
     Route: 048
     Dates: start: 20171229
  69. LEVOFLOXACIN HEMIHYDRATE [Concomitant]
     Active Substance: LEVOFLOXACIN
     Indication: PROPHYLAXIS
     Route: 048
     Dates: start: 20180130, end: 20180207
  70. CRAVIT [Concomitant]
     Active Substance: LEVOFLOXACIN
     Indication: PNEUMONIA
     Dosage: UNKNOWN DOSE
     Route: 048
     Dates: start: 20180630
  71. ASP2215 [Suspect]
     Active Substance: GILTERITINIB
     Route: 048
     Dates: start: 20180913, end: 2018
  72. AS3156378 [Suspect]
     Active Substance: AZACITIDINE
     Route: 058
     Dates: start: 20180221, end: 2018
  73. AS3156378 [Suspect]
     Active Substance: AZACITIDINE
     Route: 058
     Dates: start: 20180816
  74. BESOFTEN [Concomitant]
     Active Substance: PENTOSAN POLYSULFATE SODIUM
     Indication: DERMATITIS CONTACT
     Dosage: ADEQUATE DOSE, THRICE DAILY
     Route: 061
     Dates: start: 20170917
  75. BESOFTEN [Concomitant]
     Active Substance: PENTOSAN POLYSULFATE SODIUM
     Indication: PANNICULITIS
     Dosage: ADEQUATE DOSE, ONCE DAILY
     Route: 061
     Dates: start: 20171031
  76. K-SUPPLY [Concomitant]
     Active Substance: POTASSIUM CHLORIDE
     Indication: HYPOKALAEMIA
     Route: 048
     Dates: start: 20171008
  77. TEICOPLANIN [Concomitant]
     Active Substance: TEICOPLANIN
     Indication: VASCULAR DEVICE INFECTION
     Route: 042
     Dates: start: 20171008, end: 20171110
  78. FEBURIC [Concomitant]
     Active Substance: FEBUXOSTAT
     Route: 048
     Dates: start: 20180503, end: 20180522
  79. ZOSYN [Concomitant]
     Active Substance: PIPERACILLIN SODIUM\TAZOBACTAM SODIUM
     Indication: FEBRILE NEUTROPENIA
     Route: 042
     Dates: start: 20180917, end: 20181005
  80. MULCHINA [Concomitant]
     Indication: CATARACT OPERATION
     Dosage: 1-2 DROPS, AS NEEDED
     Route: 047
     Dates: start: 2011
  81. HYALONSAN [Concomitant]
     Active Substance: HYALURONATE SODIUM
     Indication: DRY EYE
  82. CANCIDAS [Concomitant]
     Active Substance: CASPOFUNGIN ACETATE
     Indication: PNEUMONIA
     Route: 042
     Dates: start: 20180816, end: 20180910
  83. MEROPENEM. [Concomitant]
     Active Substance: MEROPENEM
     Indication: C-REACTIVE PROTEIN INCREASED
     Route: 042
     Dates: start: 20180525, end: 20180629
  84. CRAVIT [Concomitant]
     Active Substance: LEVOFLOXACIN
     Indication: PNEUMONIA
     Route: 042
     Dates: start: 20180603, end: 20180629
  85. AMLODIPINE [AMLODIPINE BESILATE] [Concomitant]
     Active Substance: AMLODIPINE BESYLATE
     Indication: HYPERTENSION
     Route: 048
     Dates: start: 20171201
  86. FEBURIC [Concomitant]
     Active Substance: FEBUXOSTAT
     Route: 048
     Dates: start: 20180712
  87. ZOSYN [Concomitant]
     Active Substance: PIPERACILLIN SODIUM\TAZOBACTAM SODIUM
     Indication: C-REACTIVE PROTEIN INCREASED
     Route: 065
     Dates: start: 20180516
  88. AMBISOME [Concomitant]
     Active Substance: AMPHOTERICIN B
     Indication: FEBRILE NEUTROPENIA
     Dosage: UNKNOWN DOSE
     Route: 065
     Dates: start: 20180819
  89. AMBISOME [Concomitant]
     Active Substance: AMPHOTERICIN B
     Route: 041
     Dates: start: 20180915, end: 20181009
  90. GRANISETRON [GRANISETRON HYDROCHLORIDE] [Concomitant]
     Active Substance: GRANISETRON HYDROCHLORIDE
     Indication: PROPHYLAXIS OF NAUSEA AND VOMITING
     Route: 042
     Dates: start: 20180816, end: 20180817
  91. CALONAL [Concomitant]
     Active Substance: ACETAMINOPHEN
     Indication: ANTIPYRESIS
     Route: 048
     Dates: start: 20180817, end: 2018
  92. SOLDEM 3A [Concomitant]
     Active Substance: CARBOHYDRATES\POTASSIUM CHLORIDE\SODIUM CHLORIDE\SODIUM LACTATE
     Indication: PROPHYLAXIS
     Route: 042
     Dates: start: 20180915

REACTIONS (9)
  - Febrile neutropenia [Recovered/Resolved]
  - Muscle haemorrhage [Recovered/Resolved]
  - Neutropenia [Recovered/Resolved]
  - Febrile neutropenia [Recovered/Resolved]
  - Febrile neutropenia [Recovered/Resolved]
  - Febrile neutropenia [Recovered/Resolved]
  - Atrial fibrillation [Recovered/Resolved]
  - Pneumonia [Recovered/Resolved]
  - Pneumonia [Recovered/Resolved]

NARRATIVE: CASE EVENT DATE: 20171021
